FAERS Safety Report 15313833 (Version 6)
Quarter: 2019Q4

REPORT INFORMATION
  Report Type: Spontaneous
  Country: PE (occurrence: PE)
  Receive Date: 20180824
  Receipt Date: 20191031
  Transmission Date: 20200122
  Serious: Yes (Death, Other)
  Sender: FDA-Public Use
  Company Number: PE-ROCHE-2170261

PATIENT
  Sex: Female

DRUGS (5)
  1. PERTUZUMAB. [Suspect]
     Active Substance: PERTUZUMAB
     Indication: BREAST CANCER
     Route: 065
  2. HERCEPTIN [Suspect]
     Active Substance: TRASTUZUMAB
     Indication: BREAST CANCER
     Dosage: 18 CYCLES
     Route: 042
     Dates: start: 2012, end: 201402
  3. HERCEPTIN [Suspect]
     Active Substance: TRASTUZUMAB
     Dosage: 13 DOSES
     Route: 042
     Dates: start: 201803, end: 201804
  4. HERCEPTIN [Suspect]
     Active Substance: TRASTUZUMAB
     Route: 042
     Dates: start: 2017
  5. KADCYLA [Suspect]
     Active Substance: ADO-TRASTUZUMAB EMTANSINE
     Indication: BREAST CANCER
     Route: 065
     Dates: start: 201808, end: 201809

REACTIONS (11)
  - Decreased appetite [Not Recovered/Not Resolved]
  - Motor dysfunction [Unknown]
  - Metastases to central nervous system [Fatal]
  - Performance status decreased [Not Recovered/Not Resolved]
  - Metastases to lung [Fatal]
  - Weight decreased [Not Recovered/Not Resolved]
  - Lymphadenitis [Unknown]
  - Lymphadenopathy [Unknown]
  - Asthenia [Unknown]
  - Drug ineffective [Unknown]
  - Breast neoplasm [Not Recovered/Not Resolved]

NARRATIVE: CASE EVENT DATE: 2018
